FAERS Safety Report 9224546 (Version 1)
Quarter: 2013Q1

REPORT INFORMATION
  Report Type: Spontaneous
  Country: US (occurrence: None)
  Receive Date: 20120917
  Receipt Date: 20120917
  Transmission Date: 20140127
  Serious: Yes (Hospitalization)
  Sender: FDA-Public Use
  Company Number: 1000036678

PATIENT
  Age: 42 Year
  Sex: Female

DRUGS (8)
  1. CELEXA (CITALOPRAM HYDROBROMIDE) [Suspect]
     Route: 048
  2. LETAIRIS (AMBRISENTAN) (TABLETS) [Suspect]
     Indication: PULMONARY HYPERTENSION
  3. VICODIN (HYDROCODONE, ACETAMINOPHEN) [Suspect]
  4. XANAX (ALPRAZOLAM) [Suspect]
  5. EFFEXOR (VENLAFAXINE) [Suspect]
  6. GEODONE (ZIPRASIDONE) [Suspect]
  7. LITHIUM (LITHIUM) UNKNOWN [Suspect]
  8. SEROQUEL (QUETIAPINE FUMARATE) [Suspect]

REACTIONS (1)
  - Syncope [None]
